FAERS Safety Report 18287560 (Version 1)
Quarter: 2020Q3

REPORT INFORMATION
  Report Type: Spontaneous
  Country: AF (occurrence: AF)
  Receive Date: 20200918
  Receipt Date: 20200918
  Transmission Date: 20201103
  Serious: Yes (Death)
  Sender: FDA-Public Use
  Company Number: None

PATIENT
  Age: 72 Year
  Sex: Female
  Weight: 63.5 kg

DRUGS (12)
  1. METRONIDAZOLE 500 MG PO Q8HR [Concomitant]
     Dates: start: 20200804, end: 20200813
  2. FAMOTODINE 20 MG IV/PO BID [Concomitant]
     Dates: start: 20200715, end: 20200813
  3. CEFEPIME 1 GM IV Q6HR RENALLY DOSED THROUGH COURSE OF THERAPY [Concomitant]
     Dates: start: 20200717, end: 20200812
  4. VANCOMYCIN [Concomitant]
     Active Substance: VANCOMYCIN
     Dates: start: 20200717, end: 20200722
  5. HYDROCORTISONE 50 MG IV Q8HR [Concomitant]
     Dates: start: 20200808, end: 20200814
  6. MELATONIN 9 MG PO ONCE DAILY [Concomitant]
     Dates: start: 20200717, end: 20200722
  7. REMDESIVIR. [Suspect]
     Active Substance: REMDESIVIR
     Indication: COVID-19 PNEUMONIA
     Route: 042
     Dates: start: 20200714, end: 20200718
  8. CEFTRIAXONE 1 GM IV ONCE DAILLY [Concomitant]
     Dates: start: 20200713, end: 20200717
  9. ENOXAPARIN 40 MG SQ Q 24HR [Concomitant]
     Dates: start: 20200715, end: 20200717
  10. DEXAMETHASONE 6 MG IV ONCE DAILY [Concomitant]
     Dates: start: 20200714, end: 20200724
  11. AZITHROMYCIN 500 MG IV X 1,THEN 250 MG PO  ONCE DAILY [Concomitant]
     Dates: start: 20200713, end: 20200717
  12. HEPARIN [Concomitant]
     Active Substance: HEPARIN SODIUM
     Dates: start: 20200717, end: 20200813

REACTIONS (8)
  - Sepsis [None]
  - Septic shock [None]
  - Acute respiratory failure [None]
  - Cardiac arrest [None]
  - Acute kidney injury [None]
  - Haemodialysis [None]
  - Hypertension [None]
  - Renal tubular necrosis [None]

NARRATIVE: CASE EVENT DATE: 20200813
